FAERS Safety Report 8622616-9 (Version None)
Quarter: 2012Q3

REPORT INFORMATION
  Report Type: 
  Country: None (occurrence: None)
  Receive Date: 20120827
  Receipt Date: 20120822
  Transmission Date: 20120928
  Serious: Yes (Death)
  Sender: FDA-Public Use
  Company Number: FR-JNJFOC-20120612121

PATIENT
  Age: 60 Year
  Sex: Female

DRUGS (1)
  1. DURAGESIC-100 [Suspect]
     Indication: LUNG NEOPLASM MALIGNANT
     Route: 062
     Dates: start: 20120618

REACTIONS (4)
  - ABDOMINAL PAIN [None]
  - DISEASE PROGRESSION [None]
  - SALIVARY HYPERSECRETION [None]
  - DIARRHOEA [None]
